FAERS Safety Report 6858832-6 (Version None)
Quarter: 2010Q3

REPORT INFORMATION
  Report Type: 
  Country: None (occurrence: None)
  Receive Date: 20100719
  Receipt Date: 20080811
  Transmission Date: 20110219
  Serious: Yes (Other)
  Sender: FDA-Public Use
  Company Number: US-PFIZER INC-2008014656

PATIENT
  Sex: Female
  Weight: 83.9 kg

DRUGS (4)
  1. CHANTIX [Suspect]
     Indication: SMOKING CESSATION THERAPY
     Dosage: DAILY
     Dates: start: 20080128, end: 20080210
  2. CHANTIX [Suspect]
     Indication: TOBACCO ABUSE
  3. ALBUTEROL [Concomitant]
     Indication: ASTHMA
  4. MEDROL [Concomitant]

REACTIONS (12)
  - ARTHRALGIA [None]
  - CRYING [None]
  - DEPRESSION [None]
  - DERMATITIS [None]
  - DRUG HYPERSENSITIVITY [None]
  - FATIGUE [None]
  - FEELING ABNORMAL [None]
  - IRRITABILITY [None]
  - JOINT SWELLING [None]
  - MENTAL DISORDER [None]
  - PRURITUS [None]
  - RASH [None]
